FAERS Safety Report 16454814 (Version 1)
Quarter: 2019Q2

REPORT INFORMATION
  Report Type: Spontaneous
  Country: GB (occurrence: GB)
  Receive Date: 20190619
  Receipt Date: 20190619
  Transmission Date: 20190711
  Serious: Yes (Hospitalization)
  Sender: FDA-Public Use
  Company Number: GB-ELI_LILLY_AND_COMPANY-GB201906007857

PATIENT
  Age: 47 Year
  Sex: Male
  Weight: 73.8 kg

DRUGS (13)
  1. OLANZAPINE. [Suspect]
     Active Substance: OLANZAPINE
     Indication: SCHIZOPHRENIA
     Dosage: UNKNOWN
     Route: 065
  2. HYOSCINE [Concomitant]
     Active Substance: SCOPOLAMINE
     Indication: SALIVARY HYPERSECRETION
     Dosage: 300 UG, DAILY
     Route: 048
  3. ZAPONEX [Suspect]
     Active Substance: CLOZAPINE
     Dosage: UNKNOWN (2011 - 2017)
     Route: 048
     Dates: start: 20110831, end: 2017
  4. OMEPRAZOLE. [Concomitant]
     Active Substance: OMEPRAZOLE
     Indication: GASTROOESOPHAGEAL REFLUX DISEASE
     Dosage: 40 MG, DAILY
     Route: 048
  5. METFORMIN [Concomitant]
     Active Substance: METFORMIN HYDROCHLORIDE
     Indication: DIABETES MELLITUS
     Route: 048
  6. VITAMIN B NOS [Concomitant]
     Active Substance: VITAMIN B
     Indication: VITAMIN B COMPLEX DEFICIENCY
     Route: 048
  7. ZAPONEX [Suspect]
     Active Substance: CLOZAPINE
     Dosage: 450 MG, DAILY
     Route: 048
     Dates: start: 20171103, end: 201905
  8. BISOPROLOL [Concomitant]
     Active Substance: BISOPROLOL
     Indication: HYPERTENSION
     Dosage: 1.25 MG, DAILY
     Route: 048
  9. SODIUM VALPROATE [Concomitant]
     Active Substance: VALPROATE SODIUM
     Indication: PSYCHIATRIC DISORDER PROPHYLAXIS
     Route: 048
  10. ZAPONEX [Suspect]
     Active Substance: CLOZAPINE
     Dosage: UNKNOWN (2007 - 2008)
     Route: 048
     Dates: start: 20071026, end: 20081110
  11. ZAPONEX [Suspect]
     Active Substance: CLOZAPINE
     Dosage: UNKNOWN (2009 - 2011)
     Route: 048
     Dates: start: 20090211, end: 20110623
  12. SENNA ALEXANDRINA [Concomitant]
     Active Substance: SENNA LEAF
     Indication: CONSTIPATION
     Dosage: 7.5 MG, DAILY
     Route: 048
  13. ZAPONEX [Suspect]
     Active Substance: CLOZAPINE
     Indication: SCHIZOPHRENIA
     Dosage: UNKNOWN IN 2005
     Route: 048
     Dates: start: 20050627, end: 200508

REACTIONS (2)
  - Schizophrenia [Unknown]
  - Blood creatine phosphokinase increased [Unknown]

NARRATIVE: CASE EVENT DATE: 20190511
